FAERS Safety Report 4528840-9 (Version None)
Quarter: 2004Q4

REPORT INFORMATION
  Report Type: 
  Country: None (occurrence: None)
  Receive Date: 20041214
  Receipt Date: 20040917
  Transmission Date: 20050328
  Serious: Yes (Hospitalization)
  Sender: FDA-Public Use
  Company Number: A02200402860

PATIENT
  Age: 58 Year
  Sex: Male

DRUGS (2)
  1. ELOXATINE - (OXALIPLATIN) - SOLUTION - 5 MG/ML [Suspect]
     Indication: COLON CANCER METASTATIC
     Dosage: 170 MG OTHER
     Route: 042
     Dates: start: 20040804, end: 20040804
  2. ELOXATINE - (OXALIPLATIN) - SOLUTION - 5 MG/ML [Suspect]
     Indication: METASTASES TO LIVER
     Dosage: 170 MG OTHER
     Route: 042
     Dates: start: 20040804, end: 20040804

REACTIONS (6)
  - CHILLS [None]
  - DIARRHOEA [None]
  - HYPERTENSIVE CRISIS [None]
  - NAUSEA [None]
  - PYREXIA [None]
  - TACHYCARDIA [None]
